FAERS Safety Report 6788824-7 (Version None)
Quarter: 2010Q2

REPORT INFORMATION
  Report Type: 
  Country: None (occurrence: None)
  Receive Date: 20100623
  Receipt Date: 20080528
  Transmission Date: 20101027
  Serious: No
  Sender: FDA-Public Use
  Company Number: US-PFIZER INC-2008033606

PATIENT
  Sex: Female

DRUGS (10)
  1. GEODON [Suspect]
     Indication: BIPOLAR DISORDER
  2. LYRICA [Suspect]
     Indication: FIBROMYALGIA
     Dates: start: 20070801
  3. LAMICTAL [Concomitant]
  4. PRILOSEC [Concomitant]
  5. PERCOCET [Concomitant]
  6. ESTROGENS [Concomitant]
  7. PROGESTERONE [Concomitant]
  8. TESTOSTERONE [Concomitant]
  9. IMITREX [Concomitant]
  10. PROVIGIL [Concomitant]

REACTIONS (5)
  - DEPRESSION [None]
  - HUNGER [None]
  - INCREASED APPETITE [None]
  - TIC [None]
  - WEIGHT INCREASED [None]
